FAERS Safety Report 13305823 (Version 8)
Quarter: 2017Q3

REPORT INFORMATION
  Report Type: Spontaneous
  Country: KR (occurrence: KR)
  Receive Date: 20170308
  Receipt Date: 20170823
  Transmission Date: 20171127
  Serious: Yes (Hospitalization, Other)
  Sender: FDA-Public Use
  Company Number: KR-009507513-1703KOR002365

PATIENT
  Age: 57 Year
  Sex: Male
  Weight: 69.1 kg

DRUGS (17)
  1. ALOXI [Concomitant]
     Active Substance: PALONOSETRON HYDROCHLORIDE
     Indication: PROPHYLAXIS OF NAUSEA AND VOMITING
     Dosage: 1 AMPOULE (5ML), ONCE
     Route: 042
     Dates: start: 20170223, end: 20170223
  2. TYLENOL [Concomitant]
     Active Substance: ACETAMINOPHEN
     Indication: PROPHYLAXIS
     Dosage: 650 MG (1 TABLET), TID
     Route: 048
     Dates: start: 20170214, end: 20170309
  3. MACPERAN [Concomitant]
     Active Substance: METOCLOPRAMIDE HYDROCHLORIDE
     Indication: PROPHYLAXIS OF NAUSEA AND VOMITING
     Dosage: 1 TABLET, TID
     Route: 048
     Dates: start: 20170224, end: 20170301
  4. ALIMTA [Concomitant]
     Active Substance: PEMETREXED DISODIUM
     Indication: PALLIATIVE CARE
  5. DEXAMETHASONE. [Concomitant]
     Active Substance: DEXAMETHASONE
     Indication: ANTIEMETIC SUPPORTIVE CARE
     Dosage: 4 MG, TWO TIMES A DAY
     Route: 048
     Dates: start: 20170222, end: 20170222
  6. LANSTON [Concomitant]
     Active Substance: LANSOPRAZOLE
     Indication: PROPHYLAXIS
     Dosage: 1 TABLET (15MG), DAILY
     Route: 048
     Dates: start: 20170222
  7. ULTRACET [Concomitant]
     Active Substance: ACETAMINOPHEN\TRAMADOL HYDROCHLORIDE
     Indication: PAIN PROPHYLAXIS
     Dosage: 1 TABLET, TWO TIMES A DAY
     Route: 048
     Dates: start: 20170215
  8. EMEND (FOSAPREPITANT DIMEGLUMINE) [Suspect]
     Active Substance: FOSAPREPITANT DIMEGLUMINE
     Indication: PROPHYLAXIS OF NAUSEA AND VOMITING
     Dosage: 150 MG, ONCE
     Route: 042
     Dates: start: 20170223, end: 20170223
  9. ALIMTA [Concomitant]
     Active Substance: PEMETREXED DISODIUM
     Indication: CHEMOTHERAPY
     Dosage: 950 MG, ONCE, CYCLE 1
     Route: 042
     Dates: start: 20170223, end: 20170223
  10. CISPLATIN. [Concomitant]
     Active Substance: CISPLATIN
     Indication: PALLIATIVE CARE
  11. CISPLATIN. [Concomitant]
     Active Substance: CISPLATIN
     Indication: CHEMOTHERAPY
     Dosage: 10 MG, ONCE, CYCLE 1 (STRENGTH:10MG/20ML)
     Route: 042
     Dates: start: 20170223, end: 20170223
  12. FOLIC ACID. [Concomitant]
     Active Substance: FOLIC ACID
     Indication: PROPHYLAXIS
     Dosage: 1 TABLET (1 MG), DAILY
     Route: 048
     Dates: start: 20170214
  13. ULTRACET [Concomitant]
     Active Substance: ACETAMINOPHEN\TRAMADOL HYDROCHLORIDE
     Indication: PROPHYLAXIS
  14. CISPLATIN. [Concomitant]
     Active Substance: CISPLATIN
     Indication: CHEMOTHERAPY
     Dosage: 100 MG, ONCE, CYCLE 1 (STRENGTH: 50MG/100ML)
     Route: 042
     Dates: start: 20170223, end: 20170223
  15. CISPLATIN. [Concomitant]
     Active Substance: CISPLATIN
     Indication: PALLIATIVE CARE
  16. DEXAMETHASONE. [Concomitant]
     Active Substance: DEXAMETHASONE
     Dosage: 12 MG, ONCE
     Route: 048
     Dates: start: 20170223, end: 20170223
  17. CODENAL (CHLORPHENIRAMINE MALEATE (+) DIHYDROCODEINE BITARTRATE (+) GU [Concomitant]
     Indication: COUGH
     Dosage: 1 TABLET, THREE TIMES A DAY
     Route: 048
     Dates: start: 20170215

REACTIONS (2)
  - Rash [Recovered/Resolved]
  - Pneumonia [Recovered/Resolved]

NARRATIVE: CASE EVENT DATE: 20170228
